FAERS Safety Report 7191700-1 (Version None)
Quarter: 2010Q4

REPORT INFORMATION
  Report Type: 
  Country: None (occurrence: None)
  Receive Date: 20101203
  Receipt Date: 20101110
  Transmission Date: 20110411
  Serious: Yes (Hospitalization)
  Sender: FDA-Public Use
  Company Number: 2010SP059412

PATIENT
  Sex: Female

DRUGS (3)
  1. AERIUS (DESLORATADINE /01398501/) [Suspect]
     Indication: URTICARIA
     Dosage: 4 DF;QD ; 1 DF
     Dates: start: 20100801, end: 20101001
  2. AERIUS (DESLORATADINE /01398501/) [Suspect]
     Indication: URTICARIA
     Dosage: 4 DF;QD ; 1 DF
     Dates: start: 20101109
  3. CORTISONE [Concomitant]

REACTIONS (3)
  - CONDITION AGGRAVATED [None]
  - DRUG INEFFECTIVE [None]
  - URTICARIA [None]
